FAERS Safety Report 14944072 (Version 2)
Quarter: 2018Q2

REPORT INFORMATION
  Report Type: Report from Study
  Country: US (occurrence: US)
  Receive Date: 20180528
  Receipt Date: 20180612
  Transmission Date: 20180711
  Serious: No
  Sender: FDA-Public Use
  Company Number: US-ARALEZ PHARMACEUTICALS R+D INC.-2018-ARA-001272

PATIENT
  Sex: Female
  Weight: 58.96 kg

DRUGS (4)
  1. LYNPARZA [Suspect]
     Active Substance: OLAPARIB
     Indication: PANCREATIC CARCINOMA
     Dosage: 300 MG, BID
     Route: 048
     Dates: start: 20180510
  2. CREON [Concomitant]
     Active Substance: PANCRELIPASE AMYLASE\PANCRELIPASE LIPASE\PANCRELIPASE PROTEASE
     Indication: PRODUCT USED FOR UNKNOWN INDICATION
     Dosage: UNK
  3. METOPROLOL SUCCINATE. [Suspect]
     Active Substance: METOPROLOL SUCCINATE
     Indication: PRODUCT USED FOR UNKNOWN INDICATION
     Dosage: UNK
  4. NEXIUM [Concomitant]
     Active Substance: ESOMEPRAZOLE MAGNESIUM
     Indication: PRODUCT USED FOR UNKNOWN INDICATION
     Dosage: UNK

REACTIONS (10)
  - Malaise [Unknown]
  - Abdominal distension [Unknown]
  - Dysphagia [Unknown]
  - White blood cell count decreased [Unknown]
  - Drug dose omission [Unknown]
  - Gallbladder disorder [Unknown]
  - Back pain [Unknown]
  - Abdominal pain [Unknown]
  - Inappropriate schedule of drug administration [Not Recovered/Not Resolved]
  - Abdominal discomfort [Unknown]
